FAERS Safety Report 9388151 (Version 9)
Quarter: 2015Q3

REPORT INFORMATION
  Report Type: Spontaneous
  Country: US (occurrence: US)
  Receive Date: 20130708
  Receipt Date: 20150811
  Transmission Date: 20151125
  Serious: Yes (Hospitalization, Other)
  Sender: FDA-Public Use
  Company Number: US-GLAXOSMITHKLINE-A1029842A

PATIENT
  Age: 42 Year
  Sex: Female

DRUGS (9)
  1. FLOLAN [Suspect]
     Active Substance: EPOPROSTENOL SODIUM
     Indication: PULMONARY HYPERTENSION
     Dosage: 60 NG/KG/MIN, CO
  2. FLOLAN [Suspect]
     Active Substance: EPOPROSTENOL SODIUM
     Indication: RAYNAUD^S PHENOMENON
     Dosage: UNK
     Dates: start: 20051230
  3. FLOLAN [Suspect]
     Active Substance: EPOPROSTENOL SODIUM
     Indication: COR PULMONALE CHRONIC
     Dosage: DOSE: 60 NG/KG/MINCONCENTRATION: 60,000 NG/MLVIAL STRENGTH: 1.5 MGPUMP RATE 72 ML/DAY
     Route: 042
     Dates: start: 20051229
  4. FLOLAN [Suspect]
     Active Substance: EPOPROSTENOL SODIUM
     Dosage: 60 NG/KG/MIN, CO
     Dates: start: 20051230
  5. OPSUMIT [Concomitant]
     Active Substance: MACITENTAN
  6. FLOLAN [Suspect]
     Active Substance: EPOPROSTENOL SODIUM
     Dosage: 60 NG/KG/MIN, CO
     Route: 042
     Dates: start: 20051230
  7. TRACLEER [Concomitant]
     Active Substance: BOSENTAN
     Route: 048
  8. FLOLAN [Suspect]
     Active Substance: EPOPROSTENOL SODIUM
     Dosage: 24 NG/KG/MIN
     Route: 042
  9. REVATIO [Concomitant]
     Active Substance: SILDENAFIL CITRATE
     Route: 048

REACTIONS (11)
  - Infusion site discharge [Unknown]
  - Hospitalisation [Unknown]
  - Surgery [Recovered/Resolved]
  - Influenza [Unknown]
  - Catheter removal [Unknown]
  - Hysterectomy [Recovered/Resolved]
  - Oropharyngeal pain [Not Recovered/Not Resolved]
  - Application site irritation [Unknown]
  - Pyrexia [Not Recovered/Not Resolved]
  - Central venous catheterisation [Unknown]
  - Ill-defined disorder [Unknown]

NARRATIVE: CASE EVENT DATE: 201306
